FAERS Safety Report 9207828 (Version 1)
Quarter: 2013Q2

REPORT INFORMATION
  Report Type: Report from Study
  Country: US (occurrence: US)
  Receive Date: 20130403
  Receipt Date: 20130403
  Transmission Date: 20140414
  Serious: Yes (Death, Hospitalization)
  Sender: FDA-Public Use
  Company Number: US-TEVA-395522USA

PATIENT
  Age: 6 Month
  Sex: Female
  Weight: 5.6 kg

DRUGS (19)
  1. LESTAURTINIB [Suspect]
     Indication: ACUTE LYMPHOCYTIC LEUKAEMIA
  2. CYCLOPHOSPHAMIDE [Suspect]
     Indication: ACUTE LYMPHOCYTIC LEUKAEMIA
     Dates: end: 20120827
  3. CYTARABINE [Suspect]
     Indication: ACUTE LYMPHOCYTIC LEUKAEMIA
     Dosage: ON PROTOCOL
     Route: 042
     Dates: end: 20120617
  4. CYTARABINE [Suspect]
     Dosage: ON PROTOCOL
     Route: 037
     Dates: end: 20120617
  5. CYTARABINE [Suspect]
     Dosage: OFF PROTOCOL GIVEN BETWEEN
     Route: 042
     Dates: start: 20120928, end: 20121104
  6. CYTARABINE [Suspect]
     Dosage: OFF PROTOCOL GIVEN BETWEEN
     Route: 037
     Dates: start: 20120928, end: 20121104
  7. DAUNORUBICIN [Suspect]
     Indication: ACUTE LYMPHOCYTIC LEUKAEMIA
     Dates: end: 20120825
  8. DEXAMETHASONE [Suspect]
     Indication: ACUTE LYMPHOCYTIC LEUKAEMIA
     Dates: end: 20120913
  9. DEXAMETHASONE [Suspect]
     Dosage: ADDIT- OFF THERAPY
     Dates: end: 20121101
  10. METHOTREXATE [Suspect]
     Indication: ACUTE LYMPHOCYTIC LEUKAEMIA
     Dosage: ON PROTOCOL
     Route: 042
     Dates: end: 20120724
  11. METHOTREXATE [Suspect]
     Dosage: ON PROTOCOL
     Route: 037
     Dates: end: 20120724
  12. METHOTREXATE [Suspect]
     Dosage: OFF PROTOCOL
     Route: 037
     Dates: end: 20121024
  13. PEGASPARGASE [Suspect]
     Indication: ACUTE LYMPHOCYTIC LEUKAEMIA
     Dosage: 650 MILLION IU
  14. PEGASPARGASE [Suspect]
     Dosage: GIVEN OFF THERAPY
  15. VINCRISTINE [Suspect]
     Indication: ACUTE LYMPHOCYTIC LEUKAEMIA
     Dates: end: 20120907
  16. VINCRISTINE [Suspect]
     Dosage: GIVEN OFF PROTOCOL
     Dates: end: 20121102
  17. MITOXANTRONE [Suspect]
     Indication: ACUTE LYMPHOCYTIC LEUKAEMIA
     Route: 042
  18. HYDROCORTISONE [Suspect]
     Indication: ACUTE LYMPHOCYTIC LEUKAEMIA
     Route: 037
     Dates: start: 20121104
  19. HYDROCORTISONE [Suspect]
     Route: 042
     Dates: start: 20121104

REACTIONS (1)
  - Micrococcal sepsis [Fatal]
